FAERS Safety Report 17339615 (Version 1)
Quarter: 2020Q1

REPORT INFORMATION
  Report Type: Spontaneous
  Country: US (occurrence: US)
  Receive Date: 20200129
  Receipt Date: 20200129
  Transmission Date: 20200409
  Serious: No
  Sender: FDA-Public Use
  Company Number: US-ALLERGAN-1672713US

PATIENT

DRUGS (3)
  1. CREATINE [Concomitant]
     Active Substance: CREATINE
  2. BOTOX [Suspect]
     Active Substance: ONABOTULINUMTOXINA
     Indication: PRODUCT USED FOR UNKNOWN INDICATION
     Dosage: UNK, SINGLE
     Route: 030
  3. COMPLETE AMINO ACID SUPPLEMENTS [Concomitant]

REACTIONS (1)
  - Drug ineffective [Unknown]
